FAERS Safety Report 10036209 (Version 3)
Quarter: 2014Q2

REPORT INFORMATION
  Report Type: Spontaneous
  Country: GB (occurrence: GB)
  Receive Date: 20140325
  Receipt Date: 20140418
  Transmission Date: 20141212
  Serious: Yes (Hospitalization, Other)
  Sender: FDA-Public Use
  Company Number: GB-PFIZER INC-2014082949

PATIENT
  Age: 74 Year
  Sex: Female

DRUGS (9)
  1. NIFEDIPINE [Suspect]
     Indication: HYPERTENSION
     Dosage: 90 MG, 1X/DAY
     Route: 048
     Dates: start: 2009, end: 20120907
  2. PROPRANOLOL [Suspect]
     Indication: HYPERTENSION
     Dosage: 40 MG, 2X/DAY
     Route: 048
     Dates: start: 2009, end: 20120907
  3. DOXAZOSIN MESILATE [Suspect]
     Indication: HYPERTENSION
     Dosage: 4 MG, 2X/DAY
     Route: 048
     Dates: start: 2009, end: 20120907
  4. BLINDED THERAPY [Suspect]
     Indication: PLASMA CELL MYELOMA
     Dosage: 700 MG, 1X/DAY
     Route: 042
     Dates: start: 20120807, end: 20120904
  5. BLINDED THERAPY [Suspect]
     Indication: RENAL FAILURE
  6. BORTEZOMIB [Suspect]
     Indication: RENAL FAILURE
     Dosage: 2.1 MG, QD
     Route: 042
     Dates: start: 20120807, end: 20120904
  7. BORTEZOMIB [Suspect]
     Indication: PLASMA CELL MYELOMA
  8. DEXAMETHASONE [Suspect]
     Indication: RENAL FAILURE
     Dosage: 20 MG, QD
     Route: 048
     Dates: start: 20120807
  9. DEXAMETHASONE [Suspect]
     Indication: PLASMA CELL MYELOMA

REACTIONS (3)
  - Renal failure acute [Recovering/Resolving]
  - Septic shock [Recovering/Resolving]
  - Anaemia [Unknown]
